FAERS Safety Report 6819353-X (Version None)
Quarter: 2010Q3

REPORT INFORMATION
  Report Type: 
  Country: None (occurrence: None)
  Receive Date: 20100707
  Receipt Date: 20100303
  Transmission Date: 20110219
  Serious: Yes (Other)
  Sender: FDA-Public Use
  Company Number: US-ASTRAZENECA-2009SE19304

PATIENT
  Age: 708 Month

DRUGS (8)
  1. SEROQUEL [Suspect]
     Dosage: 200 MG 1/2 TO 1 TABLET AT BEDTIME
     Route: 048
     Dates: start: 20030320
  2. CLONAZEPAM [Concomitant]
     Dosage: 0.5 MG 1 TABLET EVERY MORNING AND 3 TABLETS AT BEDTIME
     Dates: start: 20030320
  3. RANITIDINE [Concomitant]
     Dates: start: 20030416
  4. PROVIGIL [Concomitant]
     Dosage: 200 MG 1/2 TABLET TWICE A DAY
     Dates: start: 20030513
  5. METOLAZONE [Concomitant]
     Dates: start: 20060720
  6. POTASSIUM CHLORIDE [Concomitant]
     Dates: start: 20060720
  7. ALTOPREV [Concomitant]
     Dates: start: 20060720
  8. ADVAIR DISKKS [Concomitant]
     Dosage: 100/50 2 PUFF Q DAY
     Dates: start: 20060720

REACTIONS (2)
  - NEUROPATHY PERIPHERAL [None]
  - TYPE 2 DIABETES MELLITUS [None]
